FAERS Safety Report 4663012-9 (Version None)
Quarter: 2005Q2

REPORT INFORMATION
  Report Type: 
  Country: None (occurrence: None)
  Receive Date: 20050513
  Receipt Date: 20050428
  Transmission Date: 20051028
  Serious: Yes (Hospitalization)
  Sender: FDA-Public Use
  Company Number: HU-2005-003010

PATIENT
  Age: 34 Year
  Sex: Female
  Weight: 90 kg

DRUGS (9)
  1. BETASERON [Suspect]
     Indication: MULTIPLE SCLEROSIS
     Dosage: 0.5ML EVERY 2D, 1ML EVERY 2D, SUBCUTANEOUS
     Route: 058
     Dates: start: 20050218, end: 20080228
  2. BETASERON [Suspect]
     Indication: MULTIPLE SCLEROSIS
     Dosage: 0.5ML EVERY 2D, 1ML EVERY 2D, SUBCUTANEOUS
     Route: 058
     Dates: start: 20050110
  3. BETASERON [Suspect]
     Indication: MULTIPLE SCLEROSIS
     Dosage: 0.5ML EVERY 2D, 1ML EVERY 2D, SUBCUTANEOUS
     Route: 058
     Dates: start: 20050301
  4. TRI-REGOL (LEVONORGESTREL, ETHINYLESTRADIOL) [Suspect]
     Indication: ORAL CONTRACEPTION
     Dates: end: 20050218
  5. ZOLOFT [Concomitant]
  6. MIANSERIN (MIANSERIN) [Concomitant]
  7. XANAX [Concomitant]
  8. ACETAMINOPHEN [Concomitant]
  9. COPAXONE [Suspect]

REACTIONS (3)
  - HEPATIC STEATOSIS [None]
  - LIVER DISORDER [None]
  - WEIGHT DECREASED [None]
